FAERS Safety Report 7384444-4 (Version None)
Quarter: 2011Q1

REPORT INFORMATION
  Report Type: 
  Country: None (occurrence: None)
  Receive Date: 20110330
  Receipt Date: 20110324
  Transmission Date: 20110831
  Serious: Yes (Hospitalization, Other)
  Sender: FDA-Public Use
  Company Number: US-BRISTOL-MYERS SQUIBB COMPANY-15633142

PATIENT
  Age: 74 Year
  Sex: Female
  Weight: 56 kg

DRUGS (4)
  1. WARFARIN SODIUM [Suspect]
     Dosage: 1DF=1-1.5MG
  2. POTASSIUM [Concomitant]
  3. MAGNESIUM [Concomitant]
  4. FLUCONAZOLE [Concomitant]

REACTIONS (6)
  - BLUE TOE SYNDROME [None]
  - COCCIDIOIDOMYCOSIS [None]
  - WEIGHT DECREASED [None]
  - THYROID DISORDER [None]
  - THROMBOSIS [None]
  - INTERNATIONAL NORMALISED RATIO FLUCTUATION [None]
